FAERS Safety Report 5886440-2 (Version None)
Quarter: 2008Q3

REPORT INFORMATION
  Report Type: 
  Country: None (occurrence: None)
  Receive Date: 20080917
  Receipt Date: 20080910
  Transmission Date: 20090109
  Serious: Yes (Hospitalization, Other)
  Sender: FDA-Public Use
  Company Number: AU-AVENTIS-200818707GDDC

PATIENT
  Age: 67 Year
  Sex: Male

DRUGS (3)
  1. LANTUS [Suspect]
     Indication: TYPE 1 DIABETES MELLITUS
     Route: 058
  2. AUTOPEN 24 [Suspect]
  3. NOVORAPID [Concomitant]
     Route: 058

REACTIONS (2)
  - CATARACT [None]
  - PERITONITIS [None]
